FAERS Safety Report 23941365 (Version 2)
Quarter: 2024Q2

REPORT INFORMATION
  Report Type: Spontaneous
  Country: JP (occurrence: JP)
  Receive Date: 20240605
  Receipt Date: 20240612
  Transmission Date: 20240716
  Serious: Yes (Death, Other)
  Sender: FDA-Public Use
  Company Number: JP-MALLINCKRODT-MNK202403670

PATIENT
  Sex: Male
  Weight: 2 kg

DRUGS (16)
  1. NITRIC OXIDE [Suspect]
     Active Substance: NITRIC OXIDE
     Indication: Pulmonary hypertension
     Dosage: UNKNOWN
     Route: 055
  2. NITRIC OXIDE [Suspect]
     Active Substance: NITRIC OXIDE
     Indication: Bronchopulmonary dysplasia
     Dosage: UNKNOWN (GRADUALLY REDUCED)
     Route: 055
  3. NITRIC OXIDE [Suspect]
     Active Substance: NITRIC OXIDE
     Dosage: UNKNOWN (INCREASED, ON 19TH DAY OF CRISIS)
     Route: 055
  4. NITRIC OXIDE [Suspect]
     Active Substance: NITRIC OXIDE
     Dosage: UNKNOWN (WEANING)
     Route: 055
  5. NITRIC OXIDE [Suspect]
     Active Substance: NITRIC OXIDE
     Dosage: INCREASED TO 70 PPM
     Route: 055
  6. NITRIC OXIDE [Suspect]
     Active Substance: NITRIC OXIDE
     Dosage: TAPERED OFF
     Route: 055
  7. SILDENAFIL [Suspect]
     Active Substance: SILDENAFIL
     Indication: Pulmonary hypertension
  8. SILDENAFIL [Suspect]
     Active Substance: SILDENAFIL
  9. SILDENAFIL [Suspect]
     Active Substance: SILDENAFIL
     Dosage: DOSE INCREASED
  10. EPOPROSTENOL [Concomitant]
     Active Substance: EPOPROSTENOL
     Indication: Pulmonary hypertension
     Dosage: UNKNOWN
     Route: 042
  11. EPOPROSTENOL [Concomitant]
     Active Substance: EPOPROSTENOL
     Dosage: DOSE INCREASED
  12. EPOPROSTENOL [Concomitant]
     Active Substance: EPOPROSTENOL
     Dosage: DOSE REDUCED
  13. EPOPROSTENOL [Concomitant]
     Active Substance: EPOPROSTENOL
     Dosage: DOSE INCREASED
  14. MILRINONE [Concomitant]
     Active Substance: MILRINONE
  15. OXYGEN [Concomitant]
     Active Substance: OXYGEN
     Dosage: UNKNOWN
  16. OXYGEN [Concomitant]
     Active Substance: OXYGEN
     Indication: Bronchopulmonary dysplasia

REACTIONS (3)
  - Pneumothorax [Fatal]
  - Hypovolaemic shock [Recovering/Resolving]
  - Intentional overdose [Unknown]
